FAERS Safety Report 5481155-7 (Version None)
Quarter: 2007Q4

REPORT INFORMATION
  Report Type: 
  Country: None (occurrence: None)
  Receive Date: 20071004
  Receipt Date: 20070919
  Transmission Date: 20080405
  Serious: Yes (Other)
  Sender: FDA-Public Use
  Company Number: 018870

PATIENT
  Age: 20 Year
  Sex: Female

DRUGS (4)
  1. AZITHROMYCIN(AZITHROMYCIN) TABLET, 250MG [Suspect]
     Indication: RESPIRATORY TRACT INFECTION
     Dosage: 500 MG, SINGLE, AT 35 WEEKS OF,; 250 MG, QD, AT 35 WEEKS OF GEST.,
  2. AZITHROMYCIN(AZITHROMYCIN) TABLET, 250MG [Suspect]
     Indication: URINARY TRACT INFECTION
     Dosage: 500 MG, SINGLE, AT 35 WEEKS OF,; 250 MG, QD, AT 35 WEEKS OF GEST.,
  3. AZITHROMYCIN(AZITHROMYCIN) TABLET, 250MG [Suspect]
     Indication: RESPIRATORY TRACT INFECTION
     Dosage: 500 MG, SINGLE, AT 35 WEEKS OF,; 250 MG, QD, AT 35 WEEKS OF GEST.,
  4. AZITHROMYCIN(AZITHROMYCIN) TABLET, 250MG [Suspect]
     Indication: URINARY TRACT INFECTION
     Dosage: 500 MG, SINGLE, AT 35 WEEKS OF,; 250 MG, QD, AT 35 WEEKS OF GEST.,

REACTIONS (2)
  - CAESAREAN SECTION [None]
  - DRUG EXPOSURE DURING PREGNANCY [None]
